FAERS Safety Report 6312408-8 (Version None)
Quarter: 2009Q3

REPORT INFORMATION
  Report Type: 
  Country: None (occurrence: None)
  Receive Date: 20090813
  Receipt Date: 20090728
  Transmission Date: 20100115
  Serious: No
  Sender: FDA-Public Use
  Company Number: F03200900086

PATIENT
  Age: 77 Year
  Sex: Female

DRUGS (23)
  1. OFORTA [Suspect]
     Indication: LYMPHOPLASMACYTOID LYMPHOMA/IMMUNOCYTOMA STAGE IV
     Dosage: 30 MG QD / 30 MG QD / 30 MG QD, ORAL
     Route: 048
     Dates: start: 20080926, end: 20080930
  2. OFORTA [Suspect]
     Indication: LYMPHOPLASMACYTOID LYMPHOMA/IMMUNOCYTOMA STAGE IV
     Dosage: 30 MG QD / 30 MG QD / 30 MG QD, ORAL
     Route: 048
     Dates: start: 20081115, end: 20081119
  3. OFORTA [Suspect]
     Indication: LYMPHOPLASMACYTOID LYMPHOMA/IMMUNOCYTOMA STAGE IV
     Dosage: 30 MG QD / 30 MG QD / 30 MG QD, ORAL
     Route: 048
     Dates: start: 20081229, end: 20090102
  4. ITRACONAZOLE [Suspect]
     Indication: STOMATITIS
     Dosage: 20 ML QD ORAL
     Route: 048
     Dates: start: 20081003, end: 20081007
  5. RITUXAN [Concomitant]
  6. AZUNOL (SODIUM GUALENATE) [Concomitant]
  7. DEXALTIN (DEXAMETHASONE) [Concomitant]
  8. BAKTAR (TRIMETHOPRIM) [Concomitant]
  9. OMEPRAZOLE [Concomitant]
  10. ALLOPURINOL [Concomitant]
  11. LASIX [Concomitant]
  12. PREDNISOLONE [Concomitant]
  13. LOXONIN (LOXOPROFEN SODIUM) [Concomitant]
  14. NEOMALLERMIN-TR (CHLORPHENIRAMINE) [Concomitant]
  15. DEPAS (ETIZOLAM) [Concomitant]
  16. ALDACTONE [Concomitant]
  17. PLATELET CONCENTRATE (PLATELETS, HUMAN BLOOD) [Concomitant]
  18. RED CELLS M_A_P (BLOOD CELLS, PACKED HUMAN) [Concomitant]
  19. SOL-MELCORT (METHYLPREDNISOLONE SODIUM SUCCINATE) [Concomitant]
  20. LEVOFLOXACIN [Concomitant]
  21. LACB R (LACTOBACILLUS BIFIDUS, LYOPHILIZED) [Concomitant]
  22. ITRIZOLE (ITRACONZOLE) [Concomitant]
  23. DESFERAL [Concomitant]

REACTIONS (3)
  - BLOOD POTASSIUM DECREASED [None]
  - HEPATIC FUNCTION ABNORMAL [None]
  - NEUTROPHIL COUNT DECREASED [None]
